FAERS Safety Report 13821837 (Version 1)
Quarter: 2017Q3

REPORT INFORMATION
  Report Type: Spontaneous
  Country: DK (occurrence: DK)
  Receive Date: 20170801
  Receipt Date: 20170801
  Transmission Date: 20171127
  Serious: Yes (Life-Threatening)
  Sender: FDA-Public Use
  Company Number: DK-ACCORD-056535

PATIENT
  Age: 88 Year
  Sex: Female
  Weight: 42.7 kg

DRUGS (5)
  1. ALENDRONATE TEVA [Concomitant]
     Active Substance: ALENDRONATE SODIUM
     Indication: OSTEOPOROSIS PROPHYLAXIS
     Dates: start: 2010
  2. DONEPEZIL ACCORD [Suspect]
     Active Substance: DONEPEZIL
     Indication: DEMENTIA ALZHEIMER^S TYPE
     Dosage: STRENGTH: 5 MG
     Dates: start: 20170131, end: 20170320
  3. DONEPEZILJUBILANT [Suspect]
     Active Substance: DONEPEZIL
     Indication: DEMENTIA ALZHEIMER^S TYPE
     Dosage: STRENGTH: 5 MG
     Dates: start: 20170131, end: 20170320
  4. NITROFURANTOIN DAK [Concomitant]
     Indication: URINARY TRACT INFECTION
     Dates: start: 20170120
  5. CLOPIDOGREL [Concomitant]
     Active Substance: CLOPIDOGREL BISULFATE
     Indication: THROMBOSIS PROPHYLAXIS
     Dates: start: 2015

REACTIONS (9)
  - Dizziness [Recovered/Resolved]
  - Dysstasia [None]
  - Depressed mood [Unknown]
  - Fatigue [Recovered/Resolved]
  - Feeling of despair [Unknown]
  - Crying [Unknown]
  - Weight decreased [None]
  - Ketoacidosis [Unknown]
  - Decreased appetite [Recovered/Resolved]

NARRATIVE: CASE EVENT DATE: 2017
